FAERS Safety Report 9184566 (Version 1)
Quarter: 2012Q4

REPORT INFORMATION
  Report Type: 
  Country: US (occurrence: US)
  Receive Date: 20121101
  Receipt Date: 20121101
  Transmission Date: 20130627
  Serious: No
  Sender: FDA-Public Use
  Company Number: US-PFIZER INC-2012271190

PATIENT
  Age: 57 Year
  Sex: Female
  Weight: 54.42 kg

DRUGS (5)
  1. FLECTOR [Suspect]
     Indication: ARTHRITIC PAINS
     Dosage: UNK
     Dates: start: 20121021, end: 201210
  2. ZOLOFT [Concomitant]
     Dosage: UNK
  3. WELLBUTRIN [Concomitant]
     Dosage: UNK
  4. LAMICTAL [Concomitant]
     Dosage: UNK
  5. SEROQUEL [Concomitant]
     Dosage: UNK

REACTIONS (6)
  - Throat tightness [Recovered/Resolved]
  - Headache [Recovered/Resolved]
  - Malaise [Recovered/Resolved]
  - Drug ineffective [Unknown]
  - Feeling abnormal [Recovered/Resolved]
  - Influenza like illness [Recovered/Resolved]
